FAERS Safety Report 17322131 (Version 1)
Quarter: 2020Q1

REPORT INFORMATION
  Report Type: Spontaneous
  Country: US (occurrence: US)
  Receive Date: 20200127
  Receipt Date: 20200127
  Transmission Date: 20200409
  Serious: No
  Sender: FDA-Public Use
  Company Number: US-ACORDA-ACO_160418_2019

PATIENT
  Sex: Female

DRUGS (1)
  1. AMPYRA [Suspect]
     Active Substance: DALFAMPRIDINE
     Indication: MULTIPLE SCLEROSIS
     Dosage: 10 MILLIGRAM, BID
     Route: 048
     Dates: start: 20170728

REACTIONS (6)
  - Fatigue [Unknown]
  - Asthenia [Unknown]
  - Hypoaesthesia [Unknown]
  - Dysarthria [Unknown]
  - Product dose omission [Unknown]
  - Dizziness [Unknown]
